FAERS Safety Report 9159767 (Version 1)
Quarter: 2013Q1

REPORT INFORMATION
  Report Type: Spontaneous
  Country: US (occurrence: None)
  Receive Date: 20130220
  Receipt Date: 20130220
  Transmission Date: 20140127
  Serious: Yes (Hospitalization)
  Sender: FDA-Public Use
  Company Number: AUR-APL-2013-01425

PATIENT
  Age: 55 Year
  Sex: Male

DRUGS (5)
  1. SIMVASTATIN (SIMVASTATIN) [Suspect]
     Indication: PRODUCT USED FOR UNKNOWN INDICATION
  2. ACETYLSALICYLIC ACID (ACETYLSALICYLIC ACID) [Suspect]
     Indication: IMMUNE TOLERANCE INDUCTION
     Route: 048
  3. OMEPRAZOLE (OMEPRAZOLE) [Concomitant]
  4. GLUCOSAMINE (GLUCOSAMINE) [Concomitant]
  5. MONTELUKAST [Concomitant]

REACTIONS (4)
  - Pancreatitis [None]
  - Nasal congestion [None]
  - Asthma [None]
  - Gastrooesophageal reflux disease [None]
